FAERS Safety Report 9238419 (Version 1)
Quarter: 2013Q2

REPORT INFORMATION
  Report Type: Spontaneous
  Country: US (occurrence: None)
  Receive Date: 20130417
  Receipt Date: 20130417
  Transmission Date: 20140414
  Serious: Yes (Hospitalization, Disabling, Other)
  Sender: FDA-Public Use
  Company Number: None

PATIENT
  Age: 70 Year
  Sex: Female
  Weight: 113.4 kg

DRUGS (5)
  1. CYMBALTA [Suspect]
     Indication: DEPRESSION
     Dosage: X TWICE A DAY (60MG PO CAP) DAILY CAPSULE
     Route: 048
     Dates: start: 201007, end: 201105
  2. CYMBALTA [Suspect]
     Indication: BIPOLAR I DISORDER
     Dosage: X TWICE A DAY (60MG PO CAP) DAILY CAPSULE
     Route: 048
     Dates: start: 201007, end: 201105
  3. ZOLOFT [Concomitant]
  4. DEPAKATE [Concomitant]
  5. ASPIRIN [Concomitant]

REACTIONS (5)
  - Headache [None]
  - Cerebrovascular accident [None]
  - Fatigue [None]
  - Blindness unilateral [None]
  - Myalgia [None]
